FAERS Safety Report 5233489-9 (Version None)
Quarter: 2007Q1

REPORT INFORMATION
  Report Type: 
  Country: None (occurrence: None)
  Receive Date: 20070208
  Receipt Date: 20070205
  Transmission Date: 20070707
  Serious: Yes (Other)
  Sender: FDA-Public Use
  Company Number: JP-BAYER-200710019BYL

PATIENT
  Age: 69 Year
  Sex: Female
  Weight: 56 kg

DRUGS (8)
  1. AVELOX [Suspect]
     Indication: CHRONIC SINUSITIS
     Dosage: TOTAL DAILY DOSE: 400 MG  UNIT DOSE: 400 MG
     Route: 048
     Dates: start: 20061228, end: 20061229
  2. URDESTON [Concomitant]
     Indication: HEPATITIS C
     Dosage: TOTAL DAILY DOSE: 300 MG
     Route: 048
     Dates: start: 20050725
  3. PARIET [Concomitant]
     Indication: REFLUX OESOPHAGITIS
     Dosage: TOTAL DAILY DOSE: 10 MG
     Route: 048
     Dates: start: 20060415
  4. MUCODYNE [Concomitant]
     Indication: CHRONIC SINUSITIS
     Dosage: TOTAL DAILY DOSE: 1500 MG
     Route: 048
     Dates: start: 20061120
  5. ACDEAM [Concomitant]
     Indication: CHRONIC SINUSITIS
     Dosage: TOTAL DAILY DOSE: 270 MG
     Route: 048
     Dates: start: 20061228, end: 20061229
  6. GANATON [Concomitant]
     Indication: GASTRITIS
     Dosage: TOTAL DAILY DOSE: 150 MG
     Route: 048
     Dates: start: 20050725
  7. FLUTIDE [Concomitant]
     Indication: ASTHMA
     Dosage: TOTAL DAILY DOSE: 400 ?G
     Route: 055
     Dates: start: 20060612
  8. CLARITHROMYCIN [Concomitant]
     Indication: CHRONIC SINUSITIS
     Route: 048
     Dates: start: 20061204, end: 20061217

REACTIONS (4)
  - ARRHYTHMIA [None]
  - LOSS OF CONSCIOUSNESS [None]
  - NAUSEA [None]
  - PALPITATIONS [None]
